FAERS Safety Report 10653967 (Version 1)
Quarter: 2014Q4

REPORT INFORMATION
  Report Type: Spontaneous
  Country: US (occurrence: None)
  Receive Date: 20141212
  Receipt Date: 20141212
  Transmission Date: 20150529
  Serious: Yes (Other)
  Sender: FDA-Public Use
  Company Number: 2014-US-015944

PATIENT
  Age: 38 Year
  Sex: Female

DRUGS (6)
  1. XYREM [Suspect]
     Active Substance: SODIUM OXYBATE
     Indication: NARCOLEPSY
     Route: 048
     Dates: start: 201409, end: 2014
  2. DEPLIN-ALGAL OIL (CALCIUM LEVOMEFOLATE) [Concomitant]
  3. KLONOPIN (CLONAZEPAM( [Concomitant]
  4. OMEGA-3 FATTY ACIDS [Concomitant]
     Active Substance: OMEGA-3 FATTY ACIDS
  5. ALL OTHER THERAPEUTIC PRODUCTS (VAYACOG) [Concomitant]
  6. PREDNISONE (PREDNISONE) [Concomitant]
     Active Substance: PREDNISONE

REACTIONS (3)
  - Pollakiuria [None]
  - Drug intolerance [None]
  - Sjogren^s syndrome [None]
